FAERS Safety Report 24104957 (Version 1)
Quarter: 2024Q3

REPORT INFORMATION
  Report Type: Spontaneous
  Country: US (occurrence: US)
  Receive Date: 20240717
  Receipt Date: 20240717
  Transmission Date: 20241016
  Serious: No
  Sender: ROCHE
  Company Number: US-ROCHE-10000005667

PATIENT
  Sex: Male
  Weight: 63.8 kg

DRUGS (1)
  1. POLIVY [Suspect]
     Active Substance: POLATUZUMAB VEDOTIN-PIIQ
     Indication: B-cell lymphoma
     Dosage: ONGOING: YES
     Route: 065
     Dates: start: 20240521

REACTIONS (2)
  - Product preparation error [Unknown]
  - No adverse event [Unknown]
